FAERS Safety Report 6307137-0 (Version None)
Quarter: 2009Q3

REPORT INFORMATION
  Report Type: 
  Country: None (occurrence: None)
  Receive Date: 20090813
  Receipt Date: 20070614
  Transmission Date: 20100115
  Serious: Yes (Other)
  Sender: FDA-Public Use
  Company Number: US-ASTRAZENECA-2006UW25430

PATIENT
  Age: 19917 Day
  Sex: Male
  Weight: 109.8 kg

DRUGS (10)
  1. SEROQUEL [Suspect]
     Indication: SCHIZOPHRENIA
     Dosage: 100 MG-600 MG
     Route: 048
     Dates: start: 20020304
  2. SEROQUEL [Suspect]
     Route: 048
     Dates: start: 20030101
  3. ALLOPURINOL [Concomitant]
     Dates: start: 20010314
  4. SERZONE [Concomitant]
     Dates: start: 20010314
  5. LIPITOR [Concomitant]
     Dates: start: 20000926
  6. ATENOLOL [Concomitant]
     Dosage: 25 MG-50 MG
     Dates: start: 20000420
  7. HALDOL [Concomitant]
     Dates: start: 20000420
  8. KLONOPIN [Concomitant]
     Dates: start: 20030529
  9. LORTAB [Concomitant]
     Dates: start: 19961025
  10. SYNTHROID [Concomitant]
     Dates: start: 20030529

REACTIONS (3)
  - DIABETIC NEUROPATHY [None]
  - HYPERGLYCAEMIA [None]
  - TYPE 2 DIABETES MELLITUS [None]
